FAERS Safety Report 6290752-0 (Version None)
Quarter: 2009Q3

REPORT INFORMATION
  Report Type: 
  Country: None (occurrence: None)
  Receive Date: 20090730
  Receipt Date: 20090717
  Transmission Date: 20100115
  Serious: Yes (Hospitalization)
  Sender: FDA-Public Use
  Company Number: PHHY2009DE30628

PATIENT
  Age: 72 Year
  Sex: Female
  Weight: 49 kg

DRUGS (7)
  1. EXELON [Suspect]
     Indication: DEMENTIA
     Dosage: 1.5 MG, BID
     Route: 048
     Dates: start: 20090605, end: 20090618
  2. EXELON [Suspect]
     Indication: DEMENTIA
     Dosage: UNK
     Route: 062
     Dates: start: 20090618, end: 20090624
  3. ASPIRIN [Concomitant]
     Indication: CORONARY ARTERY DISEASE
     Dosage: 100 MG
     Route: 048
     Dates: start: 20010101
  4. DELIX [Concomitant]
     Indication: HYPERTENSION
     Dosage: 2.5 MG
     Dates: start: 20010101
  5. METOHEXAL [Concomitant]
     Indication: HYPERTENSION
     Dosage: 23.75 MG
     Route: 048
     Dates: start: 20010101
  6. SEROQUEL [Concomitant]
     Indication: DEMENTIA
     Dosage: 25 MGUNK
     Route: 048
     Dates: start: 20080101
  7. XIMOVAN [Concomitant]
     Indication: SLEEP DISORDER
     Dosage: 7.5 MGUNK
     Dates: start: 20080101

REACTIONS (7)
  - DIZZINESS [None]
  - LOSS OF CONSCIOUSNESS [None]
  - NAUSEA [None]
  - SUPRAVENTRICULAR EXTRASYSTOLES [None]
  - SYNCOPE [None]
  - TRICUSPID VALVE INCOMPETENCE [None]
  - VENTRICULAR EXTRASYSTOLES [None]
